FAERS Safety Report 4317516-9 (Version None)
Quarter: 2004Q1

REPORT INFORMATION
  Report Type: 
  Country: None (occurrence: None)
  Receive Date: 20040312
  Receipt Date: 20040301
  Transmission Date: 20041129
  Serious: Yes (Other)
  Sender: FDA-Public Use
  Company Number: 2004-BP-01533BP (0)

PATIENT
  Age: 53 Year
  Sex: Male

DRUGS (2)
  1. MIRAPEX [Suspect]
     Indication: PARKINSON'S DISEASE
     Dosage: 5 MG (3 MG, 3 IN 1 D), PO
     Route: 048
     Dates: start: 19990101, end: 20020101
  2. SINEMET [Concomitant]

REACTIONS (2)
  - ANGER [None]
  - GAMBLING [None]
